FAERS Safety Report 11984671 (Version 1)
Quarter: 2016Q1

REPORT INFORMATION
  Report Type: Report from Study
  Country: FR (occurrence: FR)
  Receive Date: 20160201
  Receipt Date: 20160201
  Transmission Date: 20160526
  Serious: Yes (Hospitalization)
  Sender: FDA-Public Use
  Company Number: PHHO2011FR02612

PATIENT
  Age: 59 Year
  Sex: Male
  Weight: 66 kg

DRUGS (9)
  1. METHOTREXATE [Suspect]
     Active Substance: METHOTREXATE
     Indication: ACUTE LYMPHOCYTIC LEUKAEMIA
     Dosage: 1800 MG, QD
     Route: 042
     Dates: start: 20061202, end: 20061202
  2. KETODERM [Concomitant]
     Active Substance: KETOCONAZOLE
     Indication: ANORECTAL DISCOMFORT
     Dosage: CREAME
     Route: 065
     Dates: start: 20061207, end: 200612
  3. NEULASTA [Concomitant]
     Active Substance: PEGFILGRASTIM
     Indication: PROPHYLAXIS
     Dosage: 6 MG, QD
     Route: 058
     Dates: start: 20061207, end: 20061207
  4. ESBERIVEN [Concomitant]
     Active Substance: TROXERUTIN
     Indication: ANORECTAL DISCOMFORT
     Dosage: 2 DF, QD
     Route: 048
     Dates: start: 20061207, end: 200612
  5. CORTANCYL [Concomitant]
     Active Substance: PREDNISONE
     Indication: ERYTHEMA
     Dosage: 20 MG, QD
     Route: 048
     Dates: start: 20061207, end: 20061209
  6. CYTARABINE. [Suspect]
     Active Substance: CYTARABINE
     Indication: ACUTE LYMPHOCYTIC LEUKAEMIA
     Dosage: 5400 MG, BID
     Route: 042
     Dates: start: 20061202, end: 20061204
  7. STI571 [Suspect]
     Active Substance: IMATINIB MESYLATE
     Indication: ACUTE LYMPHOCYTIC LEUKAEMIA
     Dosage: 800 MG, QD
     Route: 048
     Dates: start: 20061027
  8. BACTRIM [Concomitant]
     Active Substance: SULFAMETHOXAZOLE\TRIMETHOPRIM
     Indication: PROPHYLAXIS
     Dosage: 1 DF, QD
     Route: 048
     Dates: start: 20061207, end: 200612
  9. ISOPHANE INSULIN [Concomitant]
     Active Substance: INSULIN NOS
     Indication: DIABETES PROPHYLAXIS
     Dosage: 10 IU, QD
     Route: 030
     Dates: start: 20061207, end: 200612

REACTIONS (23)
  - Febrile neutropenia [Recovered/Resolved]
  - Haemophilus infection [Recovered/Resolved]
  - Pyrexia [Recovered/Resolved with Sequelae]
  - Loss of consciousness [Recovered/Resolved with Sequelae]
  - Human herpesvirus 6 infection [Recovered/Resolved with Sequelae]
  - Cystitis [Recovered/Resolved with Sequelae]
  - Dysuria [Recovered/Resolved with Sequelae]
  - Myoclonus [Recovered/Resolved with Sequelae]
  - Cerebral toxoplasmosis [Recovered/Resolved with Sequelae]
  - Erythema [Recovered/Resolved with Sequelae]
  - Balance disorder [Recovered/Resolved with Sequelae]
  - Diarrhoea [Recovered/Resolved with Sequelae]
  - Febrile bone marrow aplasia [Unknown]
  - Escherichia infection [Recovered/Resolved]
  - Encephalopathy [Recovered/Resolved with Sequelae]
  - Pollakiuria [Recovered/Resolved with Sequelae]
  - Seizure [Recovered/Resolved with Sequelae]
  - Somnolence [Recovered/Resolved with Sequelae]
  - Tremor [Recovered/Resolved with Sequelae]
  - Hallucination, visual [Recovered/Resolved with Sequelae]
  - Chills [Recovered/Resolved]
  - Hypotension [Recovered/Resolved]
  - Nausea [Recovered/Resolved with Sequelae]

NARRATIVE: CASE EVENT DATE: 20061212
